FAERS Safety Report 10851392 (Version 1)
Quarter: 2015Q1

REPORT INFORMATION
  Report Type: Spontaneous
  Country: US (occurrence: US)
  Receive Date: 20150222
  Receipt Date: 20150222
  Transmission Date: 20150721
  Serious: No
  Sender: FDA-Public Use
  Company Number: US-ALLERGAN-1407327US

PATIENT
  Age: 53 Year
  Sex: Female

DRUGS (10)
  1. BOTOX COSMETIC [Suspect]
     Active Substance: ONABOTULINUMTOXINA
     Indication: SKIN WRINKLING
     Dosage: UNK, SINGLE
     Route: 030
     Dates: start: 20140205, end: 20140205
  2. BOTOX COSMETIC [Suspect]
     Active Substance: ONABOTULINUMTOXINA
     Indication: SKIN WRINKLING
  3. TOPAMAX [Concomitant]
     Active Substance: TOPIRAMATE
     Indication: MIGRAINE
     Dosage: UNK
     Route: 048
     Dates: start: 2004
  4. ESTROGEN [Concomitant]
     Active Substance: ESTRONE\SUS SCROFA OVARY
     Indication: HYSTERECTOMY
     Dosage: UNK
  5. JUVEDERM [Concomitant]
     Active Substance: HYALURONIC ACID
     Indication: SKIN WRINKLING
     Dosage: UNK
     Dates: start: 2008
  6. LATISSE [Concomitant]
     Active Substance: BIMATOPROST
     Indication: SKIN WRINKLING
     Dosage: UNK
     Route: 061
     Dates: start: 2008
  7. TESTOSTERONE. [Concomitant]
     Active Substance: TESTOSTERONE
     Indication: HYSTERECTOMY
     Dosage: UNK
     Route: 030
  8. MIDRIN [Concomitant]
     Active Substance: ACETAMINOPHEN\DICHLORALPHENAZONE\ISOMETHEPTENE
     Indication: MIGRAINE
     Dosage: UNK UNK, PRN
     Route: 048
  9. BOTOX COSMETIC [Suspect]
     Active Substance: ONABOTULINUMTOXINA
     Indication: SKIN WRINKLING
  10. VIVITE [Concomitant]
     Indication: SKIN WRINKLING
     Dosage: UNK
     Route: 061
     Dates: start: 2008

REACTIONS (1)
  - Therapeutic response decreased [Unknown]
